FAERS Safety Report 9940916 (Version 3)
Quarter: 2014Q2

REPORT INFORMATION
  Report Type: Report from Study
  Country: JP (occurrence: JP)
  Receive Date: 20140303
  Receipt Date: 20140402
  Transmission Date: 20141212
  Serious: Yes (Death)
  Sender: FDA-Public Use
  Company Number: JP-JNJFOC-20140104387

PATIENT
  Age: 80 Year
  Sex: Male
  Weight: 46 kg

DRUGS (12)
  1. ITRIZOLE [Suspect]
     Indication: ANTIFUNGAL PROPHYLAXIS
     Route: 048
     Dates: start: 20131220, end: 20131229
  2. OMEPRAZOLE [Concomitant]
     Route: 048
     Dates: end: 20140101
  3. PREDNISOLONE [Concomitant]
     Route: 048
     Dates: end: 20140101
  4. ALENDRONATE [Concomitant]
     Indication: OSTEOPOROSIS
     Route: 048
     Dates: end: 20140101
  5. FOLIAMIN [Concomitant]
     Indication: FOLATE DEFICIENCY
     Route: 048
     Dates: end: 20140101
  6. FEBURIC [Concomitant]
     Route: 048
     Dates: start: 20131217, end: 20140101
  7. RECOMODULIN [Concomitant]
     Dosage: 16640.0 DF ONCE DAILY
     Route: 065
     Dates: start: 20131212, end: 20131221
  8. CYLOCIDE [Concomitant]
     Route: 065
     Dates: start: 20131217, end: 20131231
  9. MEROPEN(MEROPENEM) [Concomitant]
     Route: 065
     Dates: start: 20131230, end: 20140102
  10. FUNGUARD [Concomitant]
     Route: 065
     Dates: start: 20131230, end: 20140102
  11. VANCOMYCIN [Concomitant]
     Route: 065
     Dates: start: 20131230, end: 20140102
  12. CRAVIT [Concomitant]
     Route: 048
     Dates: start: 20131220, end: 20131229

REACTIONS (3)
  - Pneumonia bacterial [Fatal]
  - Pulmonary alveolar haemorrhage [Fatal]
  - Disseminated intravascular coagulation [Unknown]
